FAERS Safety Report 12308616 (Version 2)
Quarter: 2016Q2

REPORT INFORMATION
  Report Type: Spontaneous
  Country: IT (occurrence: IT)
  Receive Date: 20160427
  Receipt Date: 20160505
  Transmission Date: 20160815
  Serious: Yes (Other)
  Sender: FDA-Public Use
  Company Number: IT-BRISTOL-MYERS SQUIBB COMPANY-BMS-2016-029965

PATIENT
  Age: 43 Year
  Sex: Male

DRUGS (2)
  1. BRUFEN                             /00109201/ [Suspect]
     Active Substance: IBUPROFEN
     Indication: MUSCULOSKELETAL CHEST PAIN
     Dosage: UNK UNK, QD
     Route: 048
     Dates: start: 20160126
  2. COUMADIN [Suspect]
     Active Substance: WARFARIN SODIUM
     Indication: ISCHAEMIA
     Dosage: UNK UNK, QD
     Route: 048
     Dates: start: 20140925

REACTIONS (3)
  - Gingival bleeding [Unknown]
  - Oropharyngeal pain [Unknown]
  - Vomiting [Unknown]

NARRATIVE: CASE EVENT DATE: 20160219
